FAERS Safety Report 8481872-0 (Version None)
Quarter: 2012Q3

REPORT INFORMATION
  Report Type: 
  Country: None (occurrence: None)
  Receive Date: 20120702
  Receipt Date: 20120627
  Transmission Date: 20120928
  Serious: Yes (Other)
  Sender: FDA-Public Use
  Company Number: US-PFIZER INC-2012154225

PATIENT
  Sex: Male
  Weight: 113 kg

DRUGS (10)
  1. LYRICA [Suspect]
     Indication: PAIN IN EXTREMITY
     Dosage: 75 MG, 1X/DAY
     Route: 048
     Dates: start: 20040101
  2. LORAZEPAM [Concomitant]
     Dosage: UNK
  3. OXYBUTYNIN [Concomitant]
     Dosage: UNK
  4. SIMVASTATIN [Concomitant]
     Dosage: UNK
  5. METOPROLOL [Concomitant]
     Dosage: UNK
  6. AMIODARONE [Concomitant]
     Dosage: UNK
  7. FINASTERIDE [Concomitant]
     Dosage: UNK
  8. FUROSEMIDE [Concomitant]
     Dosage: UNK
  9. LYRICA [Suspect]
     Indication: DIABETIC NEUROPATHY
  10. FENOFIBRATE [Concomitant]
     Dosage: UNK

REACTIONS (4)
  - ARTERIAL OCCLUSIVE DISEASE [None]
  - CORONARY ARTERY OCCLUSION [None]
  - HYPOKINESIA [None]
  - CEREBROVASCULAR ACCIDENT [None]
